FAERS Safety Report 8435129-4 (Version None)
Quarter: 2012Q2

REPORT INFORMATION
  Report Type: 
  Country: None (occurrence: None)
  Receive Date: 20120614
  Receipt Date: 20120612
  Transmission Date: 20120825
  Serious: Yes (Hospitalization, Other)
  Sender: FDA-Public Use
  Company Number: PHHO2011FR08142

PATIENT
  Sex: Male
  Weight: 69 kg

DRUGS (13)
  1. PREDNISONE TAB [Suspect]
     Indication: RENAL TRANSPLANT
     Dosage: 10 MG, QD
     Route: 048
     Dates: start: 20110427
  2. SIMULECT [Concomitant]
     Indication: RENAL TRANSPLANT
     Dosage: 20 MG, (DAY 0)
     Route: 042
     Dates: start: 20110426, end: 20110426
  3. FUNGIZONE [Concomitant]
     Dosage: UNK
     Dates: start: 20110428
  4. VITAMIN B1 AND B6 [Concomitant]
     Dosage: UNK
     Dates: start: 20110501
  5. BACTRIM [Concomitant]
     Dosage: UNK
     Dates: start: 20110427
  6. DEBRIDAT [Concomitant]
     Dosage: UNK
     Dates: start: 20110428
  7. NEORAL [Suspect]
     Indication: RENAL TRANSPLANT
     Dosage: 50 MG, BID
     Route: 048
     Dates: start: 20110428
  8. CELLCEPT [Suspect]
     Indication: RENAL TRANSPLANT
     Dosage: 500 MG, BID
     Route: 048
     Dates: start: 20110427
  9. SIMULECT [Concomitant]
     Dosage: 20 MG, (DAY 4)
     Route: 042
     Dates: start: 20110430, end: 20110430
  10. ZANTAC [Concomitant]
     Dosage: 150 MG
     Route: 048
     Dates: start: 20110427
  11. POLYETHYLENE GLYCOL [Concomitant]
     Dosage: UNK
     Dates: start: 20110428
  12. IMOVANE [Concomitant]
     Dosage: UNK
     Dates: start: 20110502
  13. LASIX [Concomitant]
     Dosage: UNK
     Dates: start: 20110426

REACTIONS (8)
  - GENERAL PHYSICAL HEALTH DETERIORATION [None]
  - RENAL FAILURE ACUTE [None]
  - DISEASE PROGRESSION [None]
  - BENIGN PROSTATIC HYPERPLASIA [None]
  - ARTERITIS [None]
  - UROSEPSIS [None]
  - KLEBSIELLA SEPSIS [None]
  - PSEUDOMONAL SEPSIS [None]
